FAERS Safety Report 12720168 (Version 1)
Quarter: 2016Q3

REPORT INFORMATION
  Report Type: Spontaneous
  Country: US (occurrence: US)
  Receive Date: 20160907
  Receipt Date: 20160907
  Transmission Date: 20161109
  Serious: No
  Sender: FDA-Public Use
  Company Number: US-PFIZER INC-2016417419

PATIENT
  Age: 58 Year
  Sex: Female
  Weight: 90.72 kg

DRUGS (3)
  1. FISH OIL [Concomitant]
     Active Substance: FISH OIL
     Dosage: DOES NOT TAKE EVERY DAY
  2. ADVIL [Suspect]
     Active Substance: IBUPROFEN
     Indication: BACK PAIN
     Dosage: 600 MG, 3X/DAY
     Dates: start: 20160819, end: 20160823
  3. ADVIL [Suspect]
     Active Substance: IBUPROFEN
     Dosage: 200 MG, 3X/DAY
     Dates: start: 20160824

REACTIONS (4)
  - Overdose [Unknown]
  - Pain [Unknown]
  - Blood pressure increased [Unknown]
  - Blood pressure fluctuation [Unknown]

NARRATIVE: CASE EVENT DATE: 2016
